FAERS Safety Report 19475145 (Version 1)
Quarter: 2021Q2

REPORT INFORMATION
  Report Type: Other
  Country: CN (occurrence: CN)
  Receive Date: 20210630
  Receipt Date: 20210630
  Transmission Date: 20210717
  Serious: Yes (Other)
  Sender: FDA-Public Use
  Company Number: CN-ROCHE-2857416

PATIENT

DRUGS (2)
  1. OXALIPLATIN. [Suspect]
     Active Substance: OXALIPLATIN
     Indication: GASTRIC CANCER
     Dosage: DAY 1
     Route: 041
  2. CAPECITABINE. [Suspect]
     Active Substance: CAPECITABINE
     Indication: GASTRIC CANCER
     Dosage: DAYS 1 TO 14
     Route: 048

REACTIONS (6)
  - Nausea [Unknown]
  - Myelosuppression [Unknown]
  - Cardiotoxicity [Unknown]
  - Vomiting [Unknown]
  - Hepatic function abnormal [Unknown]
  - Neurotoxicity [Unknown]
